FAERS Safety Report 8597846-5 (Version None)
Quarter: 2012Q3

REPORT INFORMATION
  Report Type: 
  Country: None (occurrence: None)
  Receive Date: 20120816
  Receipt Date: 20120813
  Transmission Date: 20120928
  Serious: Yes (Death, Other)
  Sender: FDA-Public Use
  Company Number: PHHY2012IT070160

PATIENT
  Age: 65 Year
  Sex: Male

DRUGS (1)
  1. ZOLEDRONIC ACID [Suspect]
     Dosage: 4 MG, EVERY 4 WEEKS
     Route: 042
     Dates: end: 20090601

REACTIONS (10)
  - EXPOSED BONE IN JAW [None]
  - BONE LESION [None]
  - MENINGITIS [None]
  - DEATH [None]
  - PAIN IN JAW [None]
  - GENERAL PHYSICAL HEALTH DETERIORATION [None]
  - OSTEONECROSIS OF JAW [None]
  - BONE SWELLING [None]
  - OROANTRAL FISTULA [None]
  - SINUSITIS [None]
